FAERS Safety Report 23488026 (Version 1)
Quarter: 2024Q1

REPORT INFORMATION
  Report Type: Report from Study
  Country: US (occurrence: US)
  Receive Date: 20240206
  Receipt Date: 20240206
  Transmission Date: 20240410
  Serious: Yes (Hospitalization, Other)
  Sender: FDA-Public Use
  Company Number: US-SUN PHARMACEUTICAL INDUSTRIES LTD-2024R1-429808

PATIENT
  Age: 15 Year
  Sex: Female

DRUGS (9)
  1. ARIPIPRAZOLE [Suspect]
     Active Substance: ARIPIPRAZOLE
     Indication: Bipolar disorder
     Dosage: 10 MILLIGRAM
     Route: 048
  2. ARIPIPRAZOLE [Suspect]
     Active Substance: ARIPIPRAZOLE
     Indication: Bulimia nervosa
  3. ARIPIPRAZOLE [Suspect]
     Active Substance: ARIPIPRAZOLE
     Indication: Substance use
  4. MIRTAZAPINE [Suspect]
     Active Substance: MIRTAZAPINE
     Indication: Bipolar disorder
     Dosage: 7.5 MILLIGRAM, EVERY NIGHT AT BEDTIME
     Route: 065
  5. MIRTAZAPINE [Suspect]
     Active Substance: MIRTAZAPINE
     Indication: Bulimia nervosa
  6. MIRTAZAPINE [Suspect]
     Active Substance: MIRTAZAPINE
     Indication: Substance use
  7. CLONIDINE [Suspect]
     Active Substance: CLONIDINE
     Indication: Bipolar disorder
     Dosage: 0.1 MILLIGRAM, DAILY
     Route: 065
  8. CLONIDINE [Suspect]
     Active Substance: CLONIDINE
     Indication: Bulimia nervosa
  9. CLONIDINE [Suspect]
     Active Substance: CLONIDINE
     Indication: Substance use

REACTIONS (3)
  - Treatment noncompliance [Unknown]
  - Refusal of treatment by patient [Unknown]
  - Akathisia [Unknown]
